FAERS Safety Report 8226437-0 (Version None)
Quarter: 2012Q1

REPORT INFORMATION
  Report Type: 
  Country: None (occurrence: None)
  Receive Date: 20120321
  Receipt Date: 20120312
  Transmission Date: 20120608
  Serious: Yes (Other)
  Sender: FDA-Public Use
  Company Number: FR-ASTRAZENECA-2012SE17503

PATIENT
  Age: 3 Year
  Weight: 16 kg

DRUGS (1)
  1. ZOLMITRIPTAN [Suspect]
     Route: 048

REACTIONS (3)
  - TOXICITY TO VARIOUS AGENTS [None]
  - TACHYCARDIA [None]
  - HEART RATE INCREASED [None]
